FAERS Safety Report 5834576-4 (Version None)
Quarter: 2008Q3

REPORT INFORMATION
  Report Type: 
  Country: None (occurrence: None)
  Receive Date: 20080805
  Receipt Date: 20080724
  Transmission Date: 20090109
  Serious: Yes (Other)
  Sender: FDA-Public Use
  Company Number: US-PFIZER INC-2008063450

PATIENT
  Sex: Female
  Weight: 76.8 kg

DRUGS (12)
  1. CHANTIX [Suspect]
     Indication: SMOKING CESSATION THERAPY
     Dates: start: 20080701, end: 20080701
  2. VERAMYST [Suspect]
  3. ZYRTEC [Concomitant]
  4. ZESTRIL [Concomitant]
  5. ACETYLSALICYLIC ACID SRT [Concomitant]
  6. PREDNISONE TAB [Concomitant]
  7. AZMACORT [Concomitant]
  8. SPIRIVA [Concomitant]
  9. LEVOXYL [Concomitant]
  10. DARVOCET [Concomitant]
  11. NITROGLYCERIN [Concomitant]
  12. VITAMIN TAB [Concomitant]

REACTIONS (4)
  - ABDOMINAL DISTENSION [None]
  - ARTHRITIS [None]
  - GINGIVAL BLEEDING [None]
  - INCISIONAL DRAINAGE [None]
